FAERS Safety Report 8400016-4 (Version None)
Quarter: 2012Q2

REPORT INFORMATION
  Report Type: 
  Country: None (occurrence: None)
  Receive Date: 20120531
  Receipt Date: 20120522
  Transmission Date: 20120825
  Serious: Yes (Other)
  Sender: FDA-Public Use
  Company Number: FR-COVIDIEN/TYCO HEALTHCARE/MALLINCKRODT-T201201904

PATIENT
  Age: 78 Year
  Sex: Male

DRUGS (3)
  1. FLUINDIONE [Suspect]
     Dosage: UNK
  2. PENNSAID [Suspect]
     Dosage: UNK
  3. DIGOXIN [Suspect]
     Dosage: UNK

REACTIONS (1)
  - DRUG RASH WITH EOSINOPHILIA AND SYSTEMIC SYMPTOMS [None]
